FAERS Safety Report 18784526 (Version 1)
Quarter: 2021Q1

REPORT INFORMATION
  Report Type: Spontaneous
  Country: FR (occurrence: FR)
  Receive Date: 20210125
  Receipt Date: 20210125
  Transmission Date: 20210419
  Serious: Yes (Other)
  Sender: FDA-Public Use
  Company Number: FR-PFIZER INC-2021040419

PATIENT
  Age: 66 Year
  Sex: Male

DRUGS (5)
  1. PERMIXON [Concomitant]
     Active Substance: HERBALS\SAW PALMETTO
     Dosage: UNK
  2. TOVIAZ [Suspect]
     Active Substance: FESOTERODINE FUMARATE
     Dosage: 4 MG, UNK
  3. TOVIAZ [Suspect]
     Active Substance: FESOTERODINE FUMARATE
     Dosage: 8 MG, UNK
     Dates: start: 20210116
  4. LANSOPRAZOLE. [Concomitant]
     Active Substance: LANSOPRAZOLE
     Dosage: 1 LOZENGE, 1X/DAY (EVENING)
  5. NOVOMIX [Concomitant]
     Active Substance: INSULIN ASPART
     Dosage: UNK, 2X/DAY (30 2X/D)

REACTIONS (6)
  - Loss of consciousness [Unknown]
  - Headache [Unknown]
  - Asthenia [Unknown]
  - Intentional product use issue [Unknown]
  - Fall [Unknown]
  - Therapeutic product effect incomplete [Unknown]
